FAERS Safety Report 8159461-7 (Version None)
Quarter: 2012Q1

REPORT INFORMATION
  Report Type: 
  Country: None (occurrence: None)
  Receive Date: 20120223
  Receipt Date: 20120215
  Transmission Date: 20120608
  Serious: Yes (Hospitalization)
  Sender: FDA-Public Use
  Company Number: US-BAYER-201037014NA

PATIENT
  Age: 21 Year
  Sex: Female
  Weight: 65.76 kg

DRUGS (10)
  1. YASMIN [Suspect]
     Route: 048
  2. ZITHROMAX [Concomitant]
     Indication: SINUSITIS
     Dosage: 250 MG, UNK
     Route: 048
     Dates: start: 20031107
  3. ENTEX PSE [Concomitant]
     Indication: SINUSITIS
     Dosage: UNK UNK, BID
     Route: 048
     Dates: start: 20031101
  4. ENTEX PSE [Concomitant]
     Indication: BRONCHITIS
  5. HYCOTUSS [Concomitant]
     Indication: SINUSITIS
     Dosage: UNK UNK, Q4HR
     Route: 048
     Dates: start: 20031101
  6. SKELAXIN [Concomitant]
     Indication: MUSCLE SPASMS
     Dosage: 400 MG, QID
     Route: 048
     Dates: start: 20031101
  7. ZITHROMAX [Concomitant]
     Indication: BRONCHITIS
  8. GUAIFENESIN [Concomitant]
     Dosage: UNK
     Dates: start: 20031121
  9. METABOLIFE [Concomitant]
  10. HYCOTUSS [Concomitant]
     Indication: BRONCHITIS

REACTIONS (3)
  - PULMONARY EMBOLISM [None]
  - PAIN [None]
  - INJURY [None]
